FAERS Safety Report 5131063-6 (Version None)
Quarter: 2006Q3

REPORT INFORMATION
  Report Type: 
  Country: None (occurrence: None)
  Receive Date: 20060829
  Receipt Date: 20060728
  Transmission Date: 20061208
  Serious: No
  Sender: FDA-Public Use
  Company Number: S06-USA-02939-01

PATIENT

DRUGS (2)
  1. CAMPRAL [Suspect]
     Dosage: UNK
  2. MULTIBLE MEDICATION (NOS) [Concomitant]

REACTIONS (1)
  - FLUID RETENTION [None]
